FAERS Safety Report 10889941 (Version 1)
Quarter: 2015Q1

REPORT INFORMATION
  Report Type: Spontaneous
  Country: US (occurrence: US)
  Receive Date: 20150305
  Receipt Date: 20150305
  Transmission Date: 20150721
  Serious: Yes (Death)
  Sender: FDA-Public Use
  Company Number: US-BANPHARM-20153600

PATIENT
  Age: 54 Year
  Sex: Male

DRUGS (4)
  1. SALICYLAMIDE [Suspect]
     Active Substance: SALICYLAMIDE
  2. DIPHENHYDRAMINE UNKNOWN PRODUCT/ACETAMINOPHEN [Suspect]
     Active Substance: ACETAMINOPHEN\DIPHENHYDRAMINE
  3. SALICYLATE [Suspect]
     Active Substance: SALICYLIC ACID
  4. CAFFEINE. [Suspect]
     Active Substance: CAFFEINE

REACTIONS (2)
  - Intentional product misuse [Fatal]
  - Exposure via ingestion [None]
